FAERS Safety Report 7404967-9 (Version None)
Quarter: 2011Q2

REPORT INFORMATION
  Report Type: 
  Country: None (occurrence: None)
  Receive Date: 20110411
  Receipt Date: 20110404
  Transmission Date: 20111010
  Serious: Yes (Other)
  Sender: FDA-Public Use
  Company Number: DE-ELI_LILLY_AND_COMPANY-DE201104000667

PATIENT
  Age: 75 Year
  Sex: Male

DRUGS (3)
  1. CALCILAC [Concomitant]
  2. PREDNISOLONE [Concomitant]
  3. FORTEO [Suspect]
     Indication: OSTEOPOROSIS
     Dosage: UNK
     Route: 058
     Dates: start: 20091019

REACTIONS (1)
  - SPINAL FRACTURE [None]
